FAERS Safety Report 17373879 (Version 2)
Quarter: 2020Q1

REPORT INFORMATION
  Report Type: Spontaneous
  Country: US (occurrence: US)
  Receive Date: 20200205
  Receipt Date: 20200207
  Transmission Date: 20200409
  Serious: No
  Sender: FDA-Public Use
  Company Number: US-009507513-2002USA001599

PATIENT
  Age: 19 Year
  Sex: Female

DRUGS (1)
  1. ALBUTEROL SULFATE. [Suspect]
     Active Substance: ALBUTEROL SULFATE
     Indication: ASTHMA
     Dosage: 2 PUFFS EVERY 4 HOURS AS NEEDED
     Route: 055

REACTIONS (5)
  - Product dose omission [Unknown]
  - Product quality issue [Unknown]
  - Product quality issue [Unknown]
  - Poor quality device used [Unknown]
  - Poor quality device used [Unknown]

NARRATIVE: CASE EVENT DATE: 201910
